FAERS Safety Report 23923995 (Version 1)
Quarter: 2024Q2

REPORT INFORMATION
  Report Type: Spontaneous
  Country: US (occurrence: None)
  Receive Date: 20240530
  Receipt Date: 20240530
  Transmission Date: 20240715
  Serious: Yes (Other)
  Sender: FDA-Public Use
  Company Number: None

PATIENT
  Sex: Male
  Weight: 81 kg

DRUGS (1)
  1. STRATTERA [Suspect]
     Active Substance: ATOMOXETINE HYDROCHLORIDE
     Indication: Attention deficit hyperactivity disorder
     Dosage: ORAL
     Route: 048
     Dates: start: 20240504, end: 20240523

REACTIONS (8)
  - Nausea [None]
  - Dizziness [None]
  - Incontinence [None]
  - Chills [None]
  - Arthralgia [None]
  - Tremor [None]
  - Dysgraphia [None]
  - Therapy cessation [None]

NARRATIVE: CASE EVENT DATE: 20240522
